FAERS Safety Report 9645377 (Version 1)
Quarter: 2013Q4

REPORT INFORMATION
  Report Type: Spontaneous
  Country: US (occurrence: US)
  Receive Date: 20131025
  Receipt Date: 20131025
  Transmission Date: 20140711
  Serious: Yes (Death)
  Sender: FDA-Public Use
  Company Number: US-PFIZER INC-2013301908

PATIENT
  Age: 68 Year
  Sex: Female

DRUGS (7)
  1. PHENYTOIN [Suspect]
     Indication: STATUS EPILEPTICUS
     Dosage: UNK
  2. LEVETIRACETAM [Suspect]
     Indication: STATUS EPILEPTICUS
     Dosage: UNK
  3. LORAZEPAM [Suspect]
     Indication: STATUS EPILEPTICUS
     Dosage: UNK
  4. PHENOBARBITAL [Concomitant]
     Indication: STATUS EPILEPTICUS
     Dosage: UNK
  5. NITROPRUSSIDE [Concomitant]
     Indication: HYPERTENSION
     Dosage: UNK
     Route: 041
  6. PROPOFOL [Concomitant]
  7. NOREPINEPHRINE [Concomitant]
     Indication: HYPERTENSION

REACTIONS (1)
  - Drug ineffective [Fatal]
